FAERS Safety Report 19247743 (Version 1)
Quarter: 2021Q2

REPORT INFORMATION
  Report Type: Report from Study
  Country: IN (occurrence: IN)
  Receive Date: 20210512
  Receipt Date: 20210512
  Transmission Date: 20210717
  Serious: Yes (Hospitalization)
  Sender: FDA-Public Use
  Company Number: NVSC2021IN096506

PATIENT
  Age: 62 Year
  Sex: Female
  Weight: 77 kg

DRUGS (1)
  1. REVOLADE [Suspect]
     Active Substance: ELTROMBOPAG OLAMINE
     Indication: APLASTIC ANAEMIA
     Dosage: 150 MG, QD
     Route: 048
     Dates: start: 20210405

REACTIONS (3)
  - Vomiting [Recovered/Resolved]
  - Cough [Recovered/Resolved with Sequelae]
  - Headache [Recovering/Resolving]

NARRATIVE: CASE EVENT DATE: 20210404
